FAERS Safety Report 6268372-3 (Version None)
Quarter: 2009Q3

REPORT INFORMATION
  Report Type: 
  Country: None (occurrence: None)
  Receive Date: 20090715
  Receipt Date: 20090709
  Transmission Date: 20100115
  Serious: Yes (Death, Hospitalization)
  Sender: FDA-Public Use
  Company Number: AU-CELGENEUS-008-20785-09061289

PATIENT
  Sex: Male

DRUGS (2)
  1. THALIDOMIDE [Suspect]
     Route: 048
     Dates: start: 20090310, end: 20090616
  2. VIDAZA [Suspect]
     Route: 065
     Dates: start: 20090310, end: 20090611

REACTIONS (1)
  - BONE MARROW FAILURE [None]
